FAERS Safety Report 18210494 (Version 4)
Quarter: 2021Q1

REPORT INFORMATION
  Report Type: Report from Study
  Country: AR (occurrence: AR)
  Receive Date: 20200829
  Receipt Date: 20210318
  Transmission Date: 20210419
  Serious: Yes (Hospitalization, Other)
  Sender: FDA-Public Use
  Company Number: NVSC2020AR236774

PATIENT
  Age: 62 Year
  Sex: Female

DRUGS (3)
  1. KISQALI [Suspect]
     Active Substance: RIBOCICLIB
     Dosage: 400 MG, QD (LAST DOSE RECEIVED IN DEC)
     Route: 048
     Dates: start: 20200822
  2. KISQALI [Suspect]
     Active Substance: RIBOCICLIB
     Indication: BREAST CANCER METASTATIC
     Dosage: 400 MG, QD
     Route: 048
     Dates: start: 20190401, end: 20200709
  3. KISQALI [Suspect]
     Active Substance: RIBOCICLIB
     Dosage: 600 MG, QD
     Route: 048
     Dates: start: 20190401

REACTIONS (6)
  - Pneumonia [Unknown]
  - Drug ineffective [Unknown]
  - Metastases to bone [Unknown]
  - Cardiac disorder [Unknown]
  - Respiratory failure [Unknown]
  - Enzyme level abnormal [Unknown]

NARRATIVE: CASE EVENT DATE: 202007
